FAERS Safety Report 10010539 (Version 2)
Quarter: 2014Q2

REPORT INFORMATION
  Report Type: Spontaneous
  Country: IT (occurrence: IT)
  Receive Date: 20140314
  Receipt Date: 20140429
  Transmission Date: 20141212
  Serious: Yes (Hospitalization)
  Sender: FDA-Public Use
  Company Number: IT-BRISTOL-MYERS SQUIBB COMPANY-20468971

PATIENT
  Age: 75 Year
  Sex: Male

DRUGS (8)
  1. GLUCOPHAGE TABS [Suspect]
     Indication: TYPE 2 DIABETES MELLITUS
     Dosage: DAILY DOSE:30X500MG
     Route: 048
     Dates: start: 20070101, end: 20120629
  2. ENAPREN [Suspect]
     Route: 048
     Dates: start: 20080101, end: 20120629
  3. HUMALOG [Concomitant]
  4. ANTRA [Concomitant]
  5. CARDIOASPIRIN [Concomitant]
     Indication: GASTROENTERITIS
     Dosage: DAILY DOSE:30X100MG
  6. PLAVIX [Concomitant]
  7. TORVAST [Concomitant]
  8. XYZAL [Concomitant]

REACTIONS (2)
  - Renal failure acute [Recovered/Resolved]
  - Metabolic acidosis [Recovered/Resolved]
